FAERS Safety Report 4748259-5 (Version None)
Quarter: 2005Q3

REPORT INFORMATION
  Report Type: 
  Country: None (occurrence: None)
  Receive Date: 20050818
  Receipt Date: 20050810
  Transmission Date: 20060218
  Serious: Yes (Hospitalization)
  Sender: FDA-Public Use
  Company Number: NL-ABBOTT-05P-114-0307999-00

PATIENT
  Sex: Female

DRUGS (2)
  1. HUMIRA [Suspect]
     Indication: DRUG USE FOR UNKNOWN INDICATION
     Route: 058
  2. HUMIRA [Suspect]
     Route: 058
     Dates: start: 20041125

REACTIONS (8)
  - ABASIA [None]
  - DEHYDRATION [None]
  - MALAISE [None]
  - MALNUTRITION [None]
  - NAUSEA [None]
  - PAIN [None]
  - PNEUMONIA [None]
  - VOMITING [None]
